FAERS Safety Report 10437673 (Version 1)
Quarter: 2014Q3

REPORT INFORMATION
  Report Type: Spontaneous
  Country: US (occurrence: US)
  Receive Date: 20140908
  Receipt Date: 20140908
  Transmission Date: 20150326
  Serious: No
  Sender: FDA-Public Use
  Company Number: US-BRISTOL-MYERS SQUIBB COMPANY-20992368

PATIENT
  Age: 62 Year
  Sex: Female
  Weight: 102.94 kg

DRUGS (2)
  1. BUPROPION [Concomitant]
     Active Substance: BUPROPION
  2. ABILIFY [Suspect]
     Active Substance: ARIPIPRAZOLE
     Indication: BIPOLAR DISORDER
     Route: 048

REACTIONS (3)
  - Anxiety [Not Recovered/Not Resolved]
  - Expired product administered [Not Recovered/Not Resolved]
  - Stress [Not Recovered/Not Resolved]

NARRATIVE: CASE EVENT DATE: 201406
